FAERS Safety Report 11367767 (Version 1)
Quarter: 2015Q3

REPORT INFORMATION
  Report Type: Spontaneous
  Country: US (occurrence: None)
  Receive Date: 20150811
  Receipt Date: 20150811
  Transmission Date: 20151125
  Serious: No
  Sender: FDA-Public Use
  Company Number: None

PATIENT
  Age: 30 Year
  Sex: Female
  Weight: 63.05 kg

DRUGS (2)
  1. SENSODYNE [Suspect]
     Active Substance: POTASSIUM NITRATE\SODIUM FLUORIDE
     Dates: start: 20150726, end: 20150801
  2. CREST PRO-HEALTH ALL-AROUND PROTECTION [Suspect]
     Active Substance: STANNOUS FLUORIDE

REACTIONS (5)
  - Hypersensitivity [None]
  - Glossodynia [None]
  - Gingival pain [None]
  - Speech disorder [None]
  - Tongue movement disturbance [None]

NARRATIVE: CASE EVENT DATE: 20150801
